APPROVED DRUG PRODUCT: ENDARI
Active Ingredient: L-GLUTAMINE
Strength: 5GM/PACKET
Dosage Form/Route: FOR SOLUTION;ORAL
Application: N208587 | Product #001 | TE Code: AA
Applicant: EMMAUS MEDICAL INC
Approved: Jul 7, 2017 | RLD: Yes | RS: No | Type: RX